FAERS Safety Report 11837348 (Version 2)
Quarter: 2016Q1

REPORT INFORMATION
  Report Type: Spontaneous
  Country: JP (occurrence: JP)
  Receive Date: 20151215
  Receipt Date: 20160107
  Transmission Date: 20160525
  Serious: Yes (Hospitalization)
  Sender: FDA-Public Use
  Company Number: JP-MALLINCKRODT-T201505685

PATIENT
  Age: 36 Year
  Sex: Female
  Weight: 68 kg

DRUGS (13)
  1. TETRAMIDE [Concomitant]
     Active Substance: MIANSERIN
     Dosage: 20 MG
     Route: 048
     Dates: start: 20151121, end: 20151204
  2. LOXOPROFEN [Concomitant]
     Active Substance: LOXOPROFEN
     Indication: ANALGESIC THERAPY
     Dosage: 180 MG
     Route: 048
     Dates: end: 20151204
  3. DECADRON [Concomitant]
     Active Substance: DEXAMETHASONE
     Dosage: 8 MG
     Route: 048
     Dates: start: 20151207, end: 20151213
  4. NEXIUM [Concomitant]
     Active Substance: ESOMEPRAZOLE MAGNESIUM
     Dosage: 20 MG
     Route: 048
     Dates: end: 20151204
  5. MAGMITT [Concomitant]
     Active Substance: MAGNESIUM OXIDE
     Dosage: 750 MG
     Route: 048
     Dates: start: 20151114, end: 20151204
  6. MORPHINE HYDROCHLORIDE [Concomitant]
     Active Substance: MORPHINE HYDROCHLORIDE
     Indication: ANALGESIC THERAPY
     Dosage: 24 MG
     Route: 058
     Dates: start: 20151202, end: 20151204
  7. POPSCAINE [Concomitant]
     Active Substance: LEVOBUPIVACAINE HYDROCHLORIDE
     Dosage: 60 MG
     Route: 008
     Dates: start: 20151130, end: 20151202
  8. POPSCAINE [Concomitant]
     Active Substance: LEVOBUPIVACAINE HYDROCHLORIDE
     Indication: ANALGESIC THERAPY
     Dosage: 30 MG
     Route: 008
     Dates: start: 20151127, end: 20151130
  9. RIVOTRIL [Concomitant]
     Active Substance: CLONAZEPAM
     Indication: ANALGESIC THERAPY
     Dosage: 1 MG
     Route: 048
     Dates: start: 20151126, end: 20151204
  10. TRIAZOLAM. [Concomitant]
     Active Substance: TRIAZOLAM
     Dosage: 0.25 MG
     Route: 048
     Dates: end: 20151204
  11. MORPHINE HYDROCHLORIDE [Concomitant]
     Active Substance: MORPHINE HYDROCHLORIDE
     Dosage: 3 MG, PRN
     Route: 051
     Dates: start: 20151129
  12. METHADONE [Suspect]
     Active Substance: METHADONE HYDROCHLORIDE
     Indication: CANCER PAIN
     Dosage: 5 MG, (15 MG DAILY DOSE)
     Route: 048
     Dates: start: 20151130, end: 20151204
  13. POPSCAINE [Concomitant]
     Active Substance: LEVOBUPIVACAINE HYDROCHLORIDE
     Dosage: 2.5 MG, PRN
     Route: 008
     Dates: start: 20151129

REACTIONS (2)
  - Diarrhoea [Recovered/Resolved]
  - Coma [Recovered/Resolved]

NARRATIVE: CASE EVENT DATE: 20151203
